FAERS Safety Report 18314843 (Version 2)
Quarter: 2020Q4

REPORT INFORMATION
  Report Type: Report from Study
  Country: IT (occurrence: IT)
  Receive Date: 20200925
  Receipt Date: 20201125
  Transmission Date: 20210113
  Serious: Yes (Death, Hospitalization)
  Sender: FDA-Public Use
  Company Number: IT-EXELIXIS-XL18420032543

PATIENT
  Age: 61 Year
  Sex: Female
  Weight: 63 kg

DRUGS (14)
  1. TEGRETOL [Concomitant]
     Active Substance: CARBAMAZEPINE
  2. ORAMORPH [Concomitant]
     Active Substance: MORPHINE SULFATE
  3. BISOPROLOL [Concomitant]
     Active Substance: BISOPROLOL
  4. XL184 [Suspect]
     Active Substance: CABOZANTINIB
     Indication: THYROID CANCER
     Dosage: 60 MG, QD
     Route: 048
     Dates: start: 20200715, end: 20200831
  5. PANTOPRAZOLE [Concomitant]
     Active Substance: PANTOPRAZOLE
  6. XANAX [Concomitant]
     Active Substance: ALPRAZOLAM
  7. CALCIUM CARBONATE. [Concomitant]
     Active Substance: CALCIUM CARBONATE
  8. MS CONTIN [Concomitant]
     Active Substance: MORPHINE SULFATE
  9. OLANZAPINE. [Concomitant]
     Active Substance: OLANZAPINE
  10. DIBASE [Concomitant]
     Active Substance: CHOLECALCIFEROL
  11. PARACETAMOL [Concomitant]
     Active Substance: ACETAMINOPHEN
  12. EUTIROX [Concomitant]
     Active Substance: LEVOTHYROXINE SODIUM
  13. TRIATEC [LOSARTAN POTASSIUM] [Concomitant]
     Active Substance: LOSARTAN POTASSIUM
  14. EUTIMIL [Concomitant]
     Active Substance: PAROXETINE HYDROCHLORIDE

REACTIONS (2)
  - Paraparesis [Not Recovered/Not Resolved]
  - Urinary retention [Not Recovered/Not Resolved]

NARRATIVE: CASE EVENT DATE: 20200827
